FAERS Safety Report 8795396 (Version 2)
Quarter: 2015Q1

REPORT INFORMATION
  Report Type: Report from Study
  Country: US (occurrence: US)
  Receive Date: 20120917
  Receipt Date: 20150327
  Transmission Date: 20150721
  Serious: Yes (Death)
  Sender: FDA-Public Use
  Company Number: US-ROCHE-1127656

PATIENT
  Age: 73 Year
  Sex: Female

DRUGS (6)
  1. AVASTIN [Suspect]
     Active Substance: BEVACIZUMAB
     Indication: BREAST CANCER FEMALE
     Route: 042
     Dates: start: 20060519
  2. VINORELBINE [Concomitant]
     Active Substance: VINORELBINE\VINORELBINE TARTRATE
     Route: 042
  3. PAMIDRONATE [Concomitant]
     Active Substance: PAMIDRONATE DISODIUM
  4. ZOLEDRONIC ACID [Concomitant]
     Active Substance: ZOLEDRONIC ACID
  5. FULVESTRANT [Concomitant]
     Active Substance: FULVESTRANT
     Route: 030
  6. FASLODEX [Concomitant]
     Active Substance: FULVESTRANT
     Route: 065

REACTIONS (4)
  - Metastases to bone [Unknown]
  - Death [Fatal]
  - Disease progression [Unknown]
  - Off label use [Unknown]

NARRATIVE: CASE EVENT DATE: 20060825
